FAERS Safety Report 5819574-9 (Version None)
Quarter: 2008Q3

REPORT INFORMATION
  Report Type: 
  Country: None (occurrence: None)
  Receive Date: 20080717
  Receipt Date: 20080702
  Transmission Date: 20090109
  Serious: Yes (Hospitalization)
  Sender: FDA-Public Use
  Company Number: 2008044019

PATIENT
  Sex: Male

DRUGS (1)
  1. FRAGMIN [Suspect]
     Dosage: 5000 I.U. (5000 I.U., FREQUENCY: QD), SUBCUTANEOUS
     Route: 058
     Dates: start: 20071101, end: 20080521

REACTIONS (4)
  - CAESAREAN SECTION [None]
  - MATERNAL DRUGS AFFECTING FOETUS [None]
  - MEDICATION ERROR [None]
  - RESPIRATORY DISORDER NEONATAL [None]
